FAERS Safety Report 21344326 (Version 1)
Quarter: 2022Q3

REPORT INFORMATION
  Report Type: Spontaneous
  Country: NL (occurrence: NL)
  Receive Date: 20220916
  Receipt Date: 20220916
  Transmission Date: 20221027
  Serious: Yes (Other)
  Sender: FDA-Public Use
  Company Number: NL-BIOVITRUM-2022NL10582

PATIENT
  Age: 68 Year
  Sex: Male

DRUGS (1)
  1. ANAKINRA [Suspect]
     Active Substance: ANAKINRA
     Indication: Product used for unknown indication
     Dosage: UNKNOWN
     Dates: start: 202208

REACTIONS (2)
  - Lipodystrophy acquired [Unknown]
  - Product use complaint [Unknown]
